FAERS Safety Report 16497368 (Version 3)
Quarter: 2019Q3

REPORT INFORMATION
  Report Type: Spontaneous
  Country: SG (occurrence: SG)
  Receive Date: 20190628
  Receipt Date: 20190709
  Transmission Date: 20191004
  Serious: Yes (Hospitalization)
  Sender: FDA-Public Use
  Company Number: SG-TEVA-2019-SG-1068557

PATIENT
  Age: 60 Year
  Sex: Male

DRUGS (6)
  1. FLUOROURACIL. [Suspect]
     Active Substance: FLUOROURACIL
     Dosage: FORTNIGHTY; LAST DOSE PRIOR TO AE 27-MAY-2019
     Route: 042
     Dates: start: 20190304, end: 20190625
  2. LEUCOVORIN. [Suspect]
     Active Substance: LEUCOVORIN
     Indication: COLORECTAL CANCER METASTATIC
     Dosage: 792 MG, FORTNIGHTY; LAST DOSE PRIOR TO AE 27-MAY-2019
     Route: 042
     Dates: start: 20190304, end: 20190625
  3. BBI608 [Suspect]
     Active Substance: NAPABUCASIN
     Indication: COLORECTAL CANCER METASTATIC
     Dosage: 480 MILLIGRAM DAILY; 240 MG, BID
     Route: 048
     Dates: start: 20190302
  4. FLUOROURACIL. [Suspect]
     Active Substance: FLUOROURACIL
     Indication: COLORECTAL CANCER METASTATIC
     Dosage: FORTNIGHTY;
     Route: 040
     Dates: start: 20190304, end: 20190318
  5. IRINOTECAN [Suspect]
     Active Substance: IRINOTECAN
     Indication: COLORECTAL CANCER METASTATIC
     Dosage: FORTNIGHTY; LAST DOSE PRIOR TO AE 27-MAY-2019
     Route: 042
     Dates: start: 20190304, end: 20190625
  6. BBI608 [Suspect]
     Active Substance: NAPABUCASIN
     Dosage: 80 MILLIGRAM DAILY; 80 MG, QD; LAST DOSE PRIOR TO AE 02-MAY-2019
     Route: 048
     Dates: start: 20190502

REACTIONS (3)
  - Small intestinal obstruction [Recovered/Resolved]
  - Abdominal pain [Recovered/Resolved]
  - Diarrhoea [Unknown]

NARRATIVE: CASE EVENT DATE: 20190613
